FAERS Safety Report 18986204 (Version 1)
Quarter: 2021Q1

REPORT INFORMATION
  Report Type: Spontaneous
  Country: CA (occurrence: CA)
  Receive Date: 20210309
  Receipt Date: 20210309
  Transmission Date: 20210420
  Serious: Yes (Death, Life-Threatening, Hospitalization, Other)
  Sender: FDA-Public Use
  Company Number: CA-STRIDES ARCOLAB LIMITED-2021SP002632

PATIENT
  Age: 6 Day
  Weight: .56 kg

DRUGS (12)
  1. FLUCONAZOLE. [Suspect]
     Active Substance: FLUCONAZOLE
     Indication: SEPTIC SHOCK
     Dosage: UNK
     Route: 065
     Dates: start: 2016
  2. AMPICILLIN [Suspect]
     Active Substance: AMPICILLIN
     Indication: SEPTIC SHOCK
  3. PIPERACILLIN AND TAZOBACTAM [Suspect]
     Active Substance: PIPERACILLIN SODIUM\TAZOBACTAM SODIUM
     Indication: SEPTIC SHOCK
     Dosage: UNK
     Route: 065
     Dates: start: 2016
  4. VANCOMYCIN [Suspect]
     Active Substance: VANCOMYCIN
     Indication: SEPTIC SHOCK
     Dosage: UNK
     Route: 065
     Dates: start: 2016
  5. MEROPENEM. [Suspect]
     Active Substance: MEROPENEM
     Indication: SEPTIC SHOCK
     Dosage: UNK
     Route: 065
     Dates: start: 2016
  6. AMPHOTERICIN [Suspect]
     Active Substance: AMPHOTERICIN B
     Indication: SEPTIC SHOCK
     Dosage: UNK
     Route: 065
     Dates: start: 2016
  7. DEXAMETHASONE. [Concomitant]
     Active Substance: DEXAMETHASONE
     Indication: BRONCHOPULMONARY DYSPLASIA
  8. AMPICILLIN [Suspect]
     Active Substance: AMPICILLIN
     Indication: ANTIBIOTIC PROPHYLAXIS
     Dosage: UNK
     Route: 042
     Dates: start: 2016
  9. TOBRAMYCIN. [Suspect]
     Active Substance: TOBRAMYCIN
     Indication: SEPTIC SHOCK
  10. SULFAMETHOXAZOLE AND TRIMETHOPRIM [Suspect]
     Active Substance: SULFAMETHOXAZOLE\TRIMETHOPRIM
     Indication: SEPTIC SHOCK
     Dosage: UNK
     Route: 065
     Dates: start: 2016
  11. DEXAMETHASONE. [Concomitant]
     Active Substance: DEXAMETHASONE
     Indication: CHOLESTASIS
     Dosage: 0.15 MILLIGRAM/KILOGRAM PER DAY, STARTED ON DOL16
     Route: 065
     Dates: start: 2016, end: 2016
  12. TOBRAMYCIN. [Suspect]
     Active Substance: TOBRAMYCIN
     Indication: ANTIBIOTIC PROPHYLAXIS
     Dosage: UNK
     Route: 065
     Dates: start: 2016

REACTIONS (1)
  - Drug ineffective [Fatal]

NARRATIVE: CASE EVENT DATE: 2016
